FAERS Safety Report 19508792 (Version 3)
Quarter: 2022Q1

REPORT INFORMATION
  Report Type: Report from Study
  Country: US (occurrence: US)
  Receive Date: 20210709
  Receipt Date: 20220124
  Transmission Date: 20220423
  Serious: Yes (Hospitalization, Other)
  Sender: FDA-Public Use
  Company Number: US-ABBVIE-21K-163-3772035-00

PATIENT
  Sex: Female
  Weight: 122.58 kg

DRUGS (4)
  1. SKYRIZI [Suspect]
     Active Substance: RISANKIZUMAB-RZAA
     Indication: Psoriasis
     Dosage: AT WEEK 0
     Route: 058
     Dates: start: 20210119, end: 20210119
  2. SKYRIZI [Suspect]
     Active Substance: RISANKIZUMAB-RZAA
     Dosage: WEEK 4
     Route: 058
     Dates: start: 20210208, end: 20210208
  3. SKYRIZI [Suspect]
     Active Substance: RISANKIZUMAB-RZAA
     Route: 058
     Dates: start: 202102
  4. PFIZER-BIONTECH COVID-19 VACCINE [Concomitant]
     Active Substance: TOZINAMERAN
     Indication: COVID-19 immunisation
     Route: 030

REACTIONS (7)
  - Joint dislocation [Unknown]
  - Foot fracture [Unknown]
  - Pneumonia bacterial [Unknown]
  - Narcolepsy [Unknown]
  - Fall [Unknown]
  - Hypertension [Unknown]
  - Erythema [Unknown]

NARRATIVE: CASE EVENT DATE: 20210101
